FAERS Safety Report 21059783 (Version 1)
Quarter: 2022Q3

REPORT INFORMATION
  Report Type: Spontaneous
  Country: US (occurrence: US)
  Receive Date: 20220708
  Receipt Date: 20220708
  Transmission Date: 20221027
  Serious: No
  Sender: FDA-Public Use
  Company Number: US-SA-SAC20220704000372

PATIENT
  Age: 76 Year
  Sex: Female
  Weight: 70.4 kg

DRUGS (1)
  1. FABRAZYME [Suspect]
     Active Substance: AGALSIDASE BETA
     Indication: Fabry^s disease
     Dosage: 700 MG, QOW
     Route: 042
     Dates: start: 20190128

REACTIONS (1)
  - Dysuria [Unknown]
